FAERS Safety Report 7323969-4 (Version None)
Quarter: 2011Q1

REPORT INFORMATION
  Report Type: 
  Country: None (occurrence: None)
  Receive Date: 20110301
  Receipt Date: 20110222
  Transmission Date: 20110831
  Serious: Yes (Hospitalization)
  Sender: FDA-Public Use
  Company Number: B0702596A

PATIENT
  Sex: Male

DRUGS (13)
  1. SEACOR [Concomitant]
     Route: 048
  2. SEREUPIN [Suspect]
     Dosage: 20MG PER DAY
     Route: 048
     Dates: start: 20090601
  3. PEPTAZOL [Concomitant]
     Dosage: 20MG PER DAY
     Route: 048
  4. EN [Concomitant]
     Route: 048
  5. NORVASC [Concomitant]
     Dosage: 10MG PER DAY
     Route: 048
  6. UNKNOWN DRUG [Concomitant]
     Route: 048
  7. OMNIC [Concomitant]
     Dosage: .4MG PER DAY
     Route: 048
  8. TICLOPIDINE HCL [Suspect]
     Dosage: 250MG TWICE PER DAY
     Route: 048
     Dates: start: 20080101, end: 20110221
  9. LASIX [Concomitant]
     Dosage: 25MG TWICE PER DAY
     Route: 048
  10. METOPROLOL [Concomitant]
     Dosage: 100MG PER DAY
     Route: 048
  11. MONOKET [Concomitant]
     Route: 048
  12. TRIATEC [Concomitant]
     Dosage: 50MG PER DAY
     Route: 048
  13. ROCALTROL [Concomitant]
     Dosage: .25MG PER DAY
     Route: 048

REACTIONS (1)
  - SUBDURAL HAEMORRHAGE [None]
